FAERS Safety Report 11930406 (Version 2)
Quarter: 2016Q1

REPORT INFORMATION
  Report Type: Spontaneous
  Country: IT (occurrence: IT)
  Receive Date: 20160120
  Receipt Date: 20160127
  Transmission Date: 20160526
  Serious: Yes (Hospitalization)
  Sender: FDA-Public Use
  Company Number: IT-PFIZER INC-2016027773

PATIENT
  Age: 71 Year
  Sex: Male

DRUGS (6)
  1. TACHIPIRINA [Concomitant]
     Active Substance: ACETAMINOPHEN
     Dosage: 500 MG, UNK
     Route: 048
  2. DEFLAN [Suspect]
     Active Substance: DEFLAZACORT
     Dosage: 6 MG, DAILY
     Route: 048
  3. PANTORC [Suspect]
     Active Substance: PANTOPRAZOLE SODIUM
     Dosage: 20 MG, DAILY
     Route: 048
  4. NEO-OPTALIDON [Suspect]
     Active Substance: ACETAMINOPHEN\CAFFEINE\PROPYPHENAZONE
     Dosage: (200 + 125 MG), DAILY
     Route: 048
  5. FLUIMUCIL [Suspect]
     Active Substance: ACETYLCYSTEINE
     Dosage: 600 MG, DAILY
     Route: 048
  6. KLACID /00984601/ [Concomitant]
     Active Substance: CLARITHROMYCIN
     Dosage: 250 MG, UNK
     Route: 048

REACTIONS (5)
  - Abdominal pain upper [Recovered/Resolved]
  - Asthenia [Recovered/Resolved]
  - Pyrexia [Recovered/Resolved]
  - Arthralgia [Recovered/Resolved]
  - Rash [Recovered/Resolved]

NARRATIVE: CASE EVENT DATE: 20151127
